FAERS Safety Report 8593254 (Version 4)
Quarter: 2014Q1

REPORT INFORMATION
  Report Type: Spontaneous
  Country: US (occurrence: US)
  Receive Date: 20120604
  Receipt Date: 20140107
  Transmission Date: 20141002
  Serious: Yes (Hospitalization)
  Sender: FDA-Public Use
  Company Number: US-ASTRAZENECA-2012SE35216

PATIENT
  Age: 49 Year
  Sex: 0

DRUGS (16)
  1. NEXIUM [Suspect]
     Indication: HEADACHE
     Route: 048
     Dates: start: 20061030
  2. NEXIUM [Suspect]
     Indication: ABDOMINAL PAIN
     Route: 048
     Dates: start: 20061030
  3. METRONIDAZOLE [Concomitant]
     Dosage: 500
     Dates: start: 20060828
  4. CYPROHEPTADI [Concomitant]
     Dates: start: 20060829
  5. ASACOL [Concomitant]
     Dates: start: 20060912
  6. FLUCONAZOLE [Concomitant]
     Dates: start: 20061031
  7. DESOXIMETASONE [Concomitant]
     Dates: start: 20080423
  8. MEDROXYPROGE [Concomitant]
     Dates: start: 20080602
  9. KETOROLAC [Concomitant]
     Dates: start: 20081114
  10. CYCLOBENZAPRINE [Concomitant]
     Dates: start: 20090121
  11. MELOXICAM [Concomitant]
     Dates: start: 20090121
  12. PREDNISONE [Concomitant]
     Dates: start: 20101202
  13. LISINOPRIL [Concomitant]
     Dates: start: 20110103
  14. AMLODIPINE [Concomitant]
     Dates: start: 20110124
  15. LORATADINE [Concomitant]
     Dates: start: 20110124
  16. NAPROXEN [Concomitant]
     Dates: start: 20070405

REACTIONS (6)
  - Arthropathy [Unknown]
  - Osteoporosis [Unknown]
  - Multiple fractures [Unknown]
  - Upper limb fracture [Unknown]
  - Arthritis [Unknown]
  - Rotator cuff syndrome [Unknown]
